FAERS Safety Report 10728848 (Version 1)
Quarter: 2015Q1

REPORT INFORMATION
  Report Type: Spontaneous
  Country: US (occurrence: None)
  Receive Date: 20150120
  Receipt Date: 20150120
  Transmission Date: 20150721
  Serious: No
  Sender: FDA-Public Use
  Company Number: None

PATIENT
  Age: 69 Year
  Sex: Female
  Weight: 111.13 kg

DRUGS (1)
  1. METOPROLOL ER [Suspect]
     Active Substance: METOPROLOL SUCCINATE
     Indication: HYPERTENSION
     Dosage: 1 PILL
     Route: 048
     Dates: start: 20150113, end: 20150115

REACTIONS (9)
  - Myalgia [None]
  - Fatigue [None]
  - Asthenia [None]
  - Nightmare [None]
  - Abdominal pain upper [None]
  - Diarrhoea [None]
  - Insomnia [None]
  - Retching [None]
  - Listless [None]

NARRATIVE: CASE EVENT DATE: 20150115
